FAERS Safety Report 9918560 (Version 1)
Quarter: 2014Q1

REPORT INFORMATION
  Report Type: Spontaneous
  Country: US (occurrence: US)
  Receive Date: 20140224
  Receipt Date: 20140224
  Transmission Date: 20141002
  Serious: No
  Sender: FDA-Public Use
  Company Number: US-BIOGENIDEC-2014BI015289

PATIENT
  Sex: Female
  Weight: 79 kg

DRUGS (2)
  1. TECFIDERA [Suspect]
     Indication: PRODUCT USED FOR UNKNOWN INDICATION
     Route: 048
  2. ASPIRIN ADLT [Concomitant]

REACTIONS (4)
  - Decreased appetite [Unknown]
  - Headache [Unknown]
  - Fatigue [Unknown]
  - Abdominal pain upper [Unknown]
